FAERS Safety Report 7502688-5 (Version None)
Quarter: 2011Q2

REPORT INFORMATION
  Report Type: 
  Country: None (occurrence: None)
  Receive Date: 20110525
  Receipt Date: 20110518
  Transmission Date: 20111010
  Serious: Yes (Other)
  Sender: FDA-Public Use
  Company Number: PHHO2011FR08660

PATIENT
  Sex: Male
  Weight: 73 kg

DRUGS (10)
  1. VALSARTAN  AND HYDROCHLOROTHIAZIDE [Suspect]
  2. ACUPAN [Concomitant]
  3. LERCANIDIPINE [Concomitant]
  4. ACYCLOVIR [Concomitant]
  5. ALFUZOSIN HYDROCHLORIDE [Concomitant]
  6. BACTRIM [Concomitant]
  7. IMATINIB MESYLATE [Suspect]
     Indication: ACUTE LYMPHOCYTIC LEUKAEMIA
     Dosage: 400 MG, UNK
     Dates: start: 20110426
  8. CANCIDAS [Concomitant]
  9. PIPERACILLIN AND TAZOBACTAM [Concomitant]
  10. OXYCODONE HCL [Concomitant]

REACTIONS (2)
  - SEPTIC SHOCK [None]
  - FASCIITIS [None]
